APPROVED DRUG PRODUCT: VYTORIN
Active Ingredient: EZETIMIBE; SIMVASTATIN
Strength: 10MG;20MG
Dosage Form/Route: TABLET;ORAL
Application: N021687 | Product #002 | TE Code: AB
Applicant: ORGANON LLC A SUB OF ORGANON AND CO
Approved: Jul 23, 2004 | RLD: Yes | RS: No | Type: RX